FAERS Safety Report 10227600 (Version 1)
Quarter: 2014Q2

REPORT INFORMATION
  Report Type: Report from Study
  Country: US (occurrence: US)
  Receive Date: 20140610
  Receipt Date: 20140610
  Transmission Date: 20141212
  Serious: Yes (Other)
  Sender: FDA-Public Use
  Company Number: US-ROCHE-1413029

PATIENT
  Age: 62 Year
  Sex: Female
  Weight: 56.75 kg

DRUGS (3)
  1. KADCYLA [Suspect]
     Indication: BREAST CANCER METASTATIC
     Route: 042
     Dates: start: 20140507
  2. HERCEPTIN [Suspect]
     Indication: BREAST CANCER METASTATIC
     Dosage: STOPPED DUE TO EJECTION FRACTION REDUCTION
     Route: 042
     Dates: start: 201202, end: 2013
  3. HERCEPTIN [Suspect]
     Route: 042
     Dates: start: 2013, end: 20140416

REACTIONS (10)
  - Recurrent cancer [Unknown]
  - Femur fracture [Unknown]
  - Epistaxis [Recovered/Resolved]
  - Weight decreased [Recovering/Resolving]
  - Pyrexia [Recovered/Resolved]
  - Nausea [Recovered/Resolved]
  - Alopecia [Unknown]
  - Hallucination [Unknown]
  - Ejection fraction decreased [Unknown]
  - Haemoptysis [Recovered/Resolved]
